FAERS Safety Report 20381542 (Version 2)
Quarter: 2022Q1

REPORT INFORMATION
  Report Type: Spontaneous
  Country: JP (occurrence: JP)
  Receive Date: 20220127
  Receipt Date: 20220318
  Transmission Date: 20220423
  Serious: No
  Sender: FDA-Public Use
  Company Number: JP-GLAXOSMITHKLINE-JP2022JPN011328

PATIENT
  Sex: Female
  Weight: 54 kg

DRUGS (4)
  1. SOTROVIMAB [Suspect]
     Active Substance: SOTROVIMAB
     Indication: COVID-19
     Dosage: UNK
     Dates: start: 20220119
  2. AMBROXOL [Suspect]
     Active Substance: AMBROXOL
     Indication: Productive cough
     Dosage: 45 MG/DAY
     Route: 048
     Dates: start: 20220120, end: 20220124
  3. ACETAMINOPHEN [Suspect]
     Active Substance: ACETAMINOPHEN
     Indication: Pyrexia
     Dosage: 400 MG/DAY
     Route: 048
     Dates: start: 20220120
  4. MAGNESIUM OXIDE [Suspect]
     Active Substance: MAGNESIUM OXIDE
     Indication: Constipation prophylaxis
     Dosage: 990 MG/DAY
     Route: 048
     Dates: start: 20220120, end: 20220303

REACTIONS (1)
  - Exposure during pregnancy [Unknown]
